FAERS Safety Report 6516272-3 (Version None)
Quarter: 2009Q4

REPORT INFORMATION
  Report Type: 
  Country: None (occurrence: None)
  Receive Date: 20091223
  Receipt Date: 20091113
  Transmission Date: 20100525
  Serious: Yes (Hospitalization)
  Sender: FDA-Public Use
  Company Number: US-ROCHE-675501

PATIENT
  Sex: Male

DRUGS (24)
  1. BEVACIZUMAB [Suspect]
     Dosage: 628 MG, Q2W
     Route: 042
     Dates: start: 20090127
  2. AMG 655 [Suspect]
     Dosage: UNK
     Route: 042
     Dates: start: 20090127
  3. FLUOROURACIL [Suspect]
     Dosage: 880 MG, Q2W
     Route: 042
     Dates: start: 20090127, end: 20090915
  4. FLUOROURACIL [Suspect]
     Dosage: 880 MG, Q2W
     Route: 042
     Dates: start: 20090127, end: 20090915
  5. FLUOROURACIL [Suspect]
     Dosage: 5280 MG, Q2W
     Route: 042
     Dates: start: 20090127, end: 20090915
  6. FLUOROURACIL [Suspect]
     Dosage: 5280 MG, Q2W
     Route: 042
     Dates: start: 20090127, end: 20090915
  7. FOLINIC ACID [Suspect]
     Dosage: 988 MG, Q2W
     Route: 042
     Dates: start: 20090127, end: 20090915
  8. FOLINIC ACID [Suspect]
     Dosage: 988 MG, Q2W
     Route: 042
     Dates: start: 20090127, end: 20090915
  9. OXALIPLATIN [Suspect]
     Dosage: 187 MG, Q2W
     Route: 042
     Dates: start: 20090127, end: 20090630
  10. OXALIPLATIN [Suspect]
     Dosage: 187 MG, Q2W
     Route: 042
     Dates: start: 20090127, end: 20090630
  11. WARFARIN SODIUM [Suspect]
     Indication: DRUG USE FOR UNKNOWN INDICATION
     Dosage: 5 MG, Q2D
     Route: 065
  12. WARFARIN SODIUM [Suspect]
     Dosage: 7.5 MG, Q2D
     Route: 065
  13. ONDANSETRON HYDROCHLORIDE [Concomitant]
     Indication: DRUG USE FOR UNKNOWN INDICATION
     Dosage: 4 MG, UNK
  14. HYDROCODONE BITARTRATE [Concomitant]
     Indication: DRUG USE FOR UNKNOWN INDICATION
  15. FLUOXETINE [Concomitant]
     Indication: DRUG USE FOR UNKNOWN INDICATION
  16. AXOTAL [Concomitant]
     Indication: DRUG USE FOR UNKNOWN INDICATION
  17. ALLOPURINOL [Concomitant]
     Indication: DRUG USE FOR UNKNOWN INDICATION
     Dosage: 100 MG, QD
  18. LOMOTIL [Concomitant]
     Indication: DRUG USE FOR UNKNOWN INDICATION
  19. LISINOPRIL [Concomitant]
     Indication: DRUG USE FOR UNKNOWN INDICATION
     Dosage: 50 MG, QD
  20. METFORMIN HCL [Concomitant]
     Indication: DRUG USE FOR UNKNOWN INDICATION
     Dosage: 1000 MG, QD
  21. PAROXETINE HYDROCHLORIDE [Concomitant]
     Indication: DRUG USE FOR UNKNOWN INDICATION
     Dosage: 40 MG, QD
  22. POTASSIUM CHLORIDE [Concomitant]
     Indication: DRUG USE FOR UNKNOWN INDICATION
     Dosage: 40 MG, QD
  23. METOPROLOL TARTRATE [Concomitant]
     Indication: DRUG USE FOR UNKNOWN INDICATION
     Dosage: 75 MG, QD
  24. LORAZEPAM [Concomitant]
     Indication: DRUG USE FOR UNKNOWN INDICATION
     Dosage: 0.5 MG, UNK

REACTIONS (2)
  - CEREBRAL HAEMORRHAGE [None]
  - CONVULSION [None]
